FAERS Safety Report 14426527 (Version 2)
Quarter: 2019Q2

REPORT INFORMATION
  Report Type: Spontaneous
  Country: US (occurrence: US)
  Receive Date: 20180123
  Receipt Date: 20190605
  Transmission Date: 20190711
  Serious: No
  Sender: FDA-Public Use
  Company Number: US-ROCHE-2028104

PATIENT
  Sex: Female

DRUGS (1)
  1. OCREVUS [Suspect]
     Active Substance: OCRELIZUMAB
     Indication: MULTIPLE SCLEROSIS
     Dosage: DAY 1 AND DAY 15; ONGOING: YES?PATIENT RECEIVED 2 INFUSIONS
     Route: 065

REACTIONS (1)
  - Hypoglycaemia [Recovered/Resolved]
